FAERS Safety Report 14827928 (Version 4)
Quarter: 2018Q3

REPORT INFORMATION
  Report Type: Report from Study
  Country: CA (occurrence: CA)
  Receive Date: 20180430
  Receipt Date: 20180918
  Transmission Date: 20181010
  Serious: Yes (Other)
  Sender: FDA-Public Use
  Company Number: CA-JNJFOC-20180432584

PATIENT
  Age: 30 Year
  Sex: Female
  Weight: 61.3 kg

DRUGS (11)
  1. REMICADE [Suspect]
     Active Substance: INFLIXIMAB
     Indication: RHEUMATOID ARTHRITIS
     Dosage: STRENGTH = 100 MG
     Route: 042
     Dates: start: 20140826
  2. METOJECT [Concomitant]
     Active Substance: METHOTREXATE SODIUM
     Dosage: STRENGTH = 15 MG
     Route: 058
  3. TRI?CYCLEN LO [Concomitant]
     Active Substance: ETHINYL ESTRADIOL\NORGESTIMATE
     Dosage: STRENGTH = 0.025 MG
     Route: 048
  4. GABAPENTIN. [Concomitant]
     Active Substance: GABAPENTIN
     Dosage: STRENGTH = 100 MG
     Route: 048
  5. REMICADE [Suspect]
     Active Substance: INFLIXIMAB
     Indication: RHEUMATOID ARTHRITIS
     Route: 042
     Dates: start: 20180904
  6. METHOTREXATE. [Concomitant]
     Active Substance: METHOTREXATE
     Route: 048
  7. PREDNISONE. [Concomitant]
     Active Substance: PREDNISONE
     Dosage: STRENGTH = 5 MG
     Route: 048
  8. EURO FOLIC [Concomitant]
     Active Substance: FOLIC ACID
     Route: 048
  9. METHOTREXATE. [Concomitant]
     Active Substance: METHOTREXATE
     Route: 058
  10. D?TABS [Concomitant]
     Active Substance: CHOLECALCIFEROL
     Dosage: STRENGTH = 10000 IU/KG
     Route: 048
  11. EURO FOLIC [Concomitant]
     Active Substance: FOLIC ACID
     Dosage: STRENGTH = 5 MG
     Route: 048

REACTIONS (6)
  - Pain [Unknown]
  - Fatigue [Unknown]
  - Malignant melanoma [Unknown]
  - Dysgeusia [Unknown]
  - Post procedural discharge [Unknown]
  - Infusion related reaction [Unknown]

NARRATIVE: CASE EVENT DATE: 20180629
